FAERS Safety Report 8328485-9 (Version None)
Quarter: 2012Q2

REPORT INFORMATION
  Report Type: 
  Country: None (occurrence: None)
  Receive Date: 20120502
  Receipt Date: 20120420
  Transmission Date: 20120825
  Serious: Yes (Hospitalization)
  Sender: FDA-Public Use
  Company Number: LT-ELI_LILLY_AND_COMPANY-LT201204007243

PATIENT
  Sex: Female
  Weight: 80 kg

DRUGS (2)
  1. ZALASTA [Concomitant]
     Dosage: 10 MG, QD
     Dates: start: 20091119
  2. OLANZAPINE [Suspect]
     Indication: SCHIZOPHRENIA
     Dosage: 405 MG, MONTHLY (1/M)
     Dates: start: 20110324

REACTIONS (2)
  - COMA [None]
  - BLOOD PRESSURE INCREASED [None]
